FAERS Safety Report 8238871 (Version 2)
Quarter: 2012Q4

REPORT INFORMATION
  Report Type: 
  Country: JP (occurrence: JP)
  Receive Date: 20111110
  Receipt Date: 20121109
  Transmission Date: 20130627
  Serious: Yes (Death, Other)
  Sender: FDA-Public Use
  Company Number: JP-BAYER-2011-108602

PATIENT
  Age: 61 Year
  Sex: Male
  Weight: 68 kg

DRUGS (7)
  1. NEXAVAR [Suspect]
     Indication: CARCINOMA HEPATOCELLULAR
     Dosage: 400 mg, BID
     Route: 048
     Dates: start: 20110805, end: 20111013
  2. ANTIBIOTICS [Concomitant]
     Dosage: UNK
     Route: 065
  3. OXYCONTIN [Concomitant]
     Indication: CANCER PAIN
     Dosage: Daily dose 10 mg
     Route: 048
     Dates: start: 20110822, end: 20111013
  4. NOVAMIN [Concomitant]
     Indication: PROPHYLAXIS OF NAUSEA AND VOMITING
     Dosage: Daily dose 15 mg
     Route: 048
     Dates: start: 20110822, end: 20111013
  5. BLOPRESS [Concomitant]
     Indication: HYPERTENSION
     Dosage: Daily dose 8 mg
     Route: 048
     Dates: start: 20110818, end: 20111013
  6. PARIET [Concomitant]
     Indication: REFLUX OESOPHAGITIS
     Dosage: Daily dose 10 mg
     Route: 048
     Dates: start: 20110729, end: 20111013
  7. IA-CALL [Concomitant]
     Dosage: Daily dose 110 mg
     Route: 013
     Dates: start: 20110715, end: 20110715

REACTIONS (12)
  - Thrombotic thrombocytopenic purpura [Fatal]
  - Altered state of consciousness [Fatal]
  - Jaundice [Fatal]
  - Renal failure [Fatal]
  - Platelet count decreased [Fatal]
  - Liver disorder [Fatal]
  - Hepatic failure [Fatal]
  - Nausea [Fatal]
  - Vomiting [Fatal]
  - Renal disorder [Fatal]
  - Haemolytic anaemia [Fatal]
  - Pneumonia [None]
